FAERS Safety Report 14349786 (Version 1)
Quarter: 2018Q1

REPORT INFORMATION
  Report Type: Spontaneous
  Country: FR (occurrence: FR)
  Receive Date: 20180104
  Receipt Date: 20180104
  Transmission Date: 20180509
  Serious: Yes (Other)
  Sender: FDA-Public Use
  Company Number: FR-MERCK KGAA-2038358

PATIENT
  Sex: Female

DRUGS (1)
  1. NOVOTHYROX [Suspect]
     Active Substance: LEVOTHYROXINE SODIUM

REACTIONS (9)
  - Autoimmune disorder [None]
  - Blood thyroid stimulating hormone abnormal [Recovering/Resolving]
  - Alopecia [None]
  - Skin reaction [None]
  - Erythema [None]
  - Pruritus [Recovering/Resolving]
  - Abdominal distension [Not Recovered/Not Resolved]
  - Constipation [None]
  - Fatigue [None]

NARRATIVE: CASE EVENT DATE: 2017
